FAERS Safety Report 20741132 (Version 1)
Quarter: 2022Q2

REPORT INFORMATION
  Report Type: Spontaneous
  Country: FR (occurrence: FR)
  Receive Date: 20220422
  Receipt Date: 20220422
  Transmission Date: 20220721
  Serious: Yes (Hospitalization)
  Sender: FDA-Public Use
  Company Number: None

PATIENT
  Age: 49 Year
  Sex: Female

DRUGS (1)
  1. TRAMADOL [Suspect]
     Active Substance: TRAMADOL
     Indication: Product used for unknown indication
     Dosage: 5 TABLETS OF 200 MG SNIFFING OVER A WHOLE DAY(STAMP)
     Route: 045
     Dates: start: 2022

REACTIONS (3)
  - Tonic convulsion [Recovered/Resolved]
  - Drug abuse [Unknown]
  - Intentional product misuse [Unknown]
